FAERS Safety Report 14078093 (Version 1)
Quarter: 2017Q4

REPORT INFORMATION
  Report Type: Spontaneous
  Country: US (occurrence: None)
  Receive Date: 20171011
  Receipt Date: 20171011
  Transmission Date: 20180321
  Serious: Yes (Other)
  Sender: FDA-Public Use
  Company Number: None

PATIENT
  Age: 58 Year
  Sex: Male

DRUGS (1)
  1. DARATUMUMAB [Suspect]
     Active Substance: DARATUMUMAB
     Dates: start: 20170608, end: 20170609

REACTIONS (5)
  - Cough [None]
  - Respiratory tract congestion [None]
  - Anaphylactic reaction [None]
  - Blood pressure increased [None]
  - Infusion related reaction [None]

NARRATIVE: CASE EVENT DATE: 20170608
